FAERS Safety Report 4744695-1 (Version None)
Quarter: 2005Q3

REPORT INFORMATION
  Report Type: 
  Country: None (occurrence: None)
  Receive Date: 20050812
  Receipt Date: 20050812
  Transmission Date: 20060218
  Serious: Yes (Hospitalization, Other)
  Sender: FDA-Public Use
  Company Number: None

PATIENT
  Sex: Male
  Weight: 90 kg

DRUGS (4)
  1. RITUXIMAB [Suspect]
     Indication: CHRONIC LYMPHOCYTIC LEUKAEMIA
     Dosage: SEE IMAGE
     Route: 042
     Dates: start: 20050718, end: 20050718
  2. PENTOSTATIN [Suspect]
     Dosage: SEE IMAGE
     Route: 042
     Dates: start: 20050718, end: 20050718
  3. CYCLOPHOSPHAMIDE [Suspect]
     Dosage: SEE IMAGE
     Route: 042
     Dates: start: 20050718, end: 20050718
  4. BACTRIM [Concomitant]

REACTIONS (1)
  - CATHETER RELATED INFECTION [None]
